FAERS Safety Report 6817054-5 (Version None)
Quarter: 2010Q3

REPORT INFORMATION
  Report Type: 
  Country: None (occurrence: None)
  Receive Date: 20100706
  Receipt Date: 20100628
  Transmission Date: 20110219
  Serious: Yes (Life-Threatening, Hospitalization)
  Sender: FDA-Public Use
  Company Number: FR-ROCHE-712600

PATIENT
  Sex: Male

DRUGS (6)
  1. AVASTIN [Suspect]
     Route: 042
     Dates: start: 20090301, end: 20100506
  2. FLUOROURACIL [Suspect]
     Route: 042
     Dates: start: 20040801, end: 20100506
  3. OXALIPLATINE [Suspect]
     Route: 042
     Dates: start: 20100101, end: 20100506
  4. IRINOTECAN HCL [Suspect]
     Indication: PRODUCT USED FOR UNKNOWN INDICATION
     Route: 042
     Dates: start: 20090301, end: 20100101
  5. ERBITUX [Suspect]
     Indication: PRODUCT USED FOR UNKNOWN INDICATION
     Route: 042
     Dates: start: 20050701, end: 20090201
  6. CALCIUM FOLINATE [Suspect]
     Indication: PRODUCT USED FOR UNKNOWN INDICATION
     Route: 065
     Dates: start: 20100101, end: 20100506

REACTIONS (1)
  - RENAL FAILURE ACUTE [None]
